FAERS Safety Report 6736074-2 (Version None)
Quarter: 2010Q2

REPORT INFORMATION
  Report Type: 
  Country: None (occurrence: None)
  Receive Date: 20100521
  Receipt Date: 20100512
  Transmission Date: 20101027
  Serious: Yes (Other)
  Sender: FDA-Public Use
  Company Number: DE-PFIZER INC-2010054566

PATIENT
  Age: 83 Year
  Sex: Male
  Weight: 87 kg

DRUGS (4)
  1. SORTIS [Suspect]
     Indication: HYPERCHOLESTEROLAEMIA
     Dosage: 10 MG, 1X/DAY
     Route: 048
     Dates: start: 20040101, end: 20100101
  2. CONCOR [Concomitant]
     Dosage: 10 MG, UNK
  3. ACETYLSALICYLIC ACID [Concomitant]
     Dosage: 100 MG, UNK
  4. PROSCAR [Concomitant]
     Dosage: UNK

REACTIONS (11)
  - BLOOD CREATININE INCREASED [None]
  - BLOOD UREA INCREASED [None]
  - ECZEMA [None]
  - ERYTHEMA [None]
  - GLOMERULAR FILTRATION RATE DECREASED [None]
  - HAEMOGLOBIN DECREASED [None]
  - MYALGIA [None]
  - PRURITUS [None]
  - RED BLOOD CELL COUNT DECREASED [None]
  - RED BLOOD CELL SEDIMENTATION RATE INCREASED [None]
  - VASCULAR GRAFT [None]
